FAERS Safety Report 20414280 (Version 1)
Quarter: 2022Q1

REPORT INFORMATION
  Report Type: Report from Study
  Country: AU (occurrence: AU)
  Receive Date: 20220202
  Receipt Date: 20220202
  Transmission Date: 20220423
  Serious: Yes (Hospitalization)
  Sender: FDA-Public Use
  Company Number: AU-NOVARTISPH-NVSC2022AU018996

PATIENT
  Age: 65 Year
  Sex: Female

DRUGS (4)
  1. RYDAPT [Suspect]
     Active Substance: MIDOSTAURIN
     Indication: Systemic mastocytosis
     Dosage: 50MG BD INCREASED TO 75 MG BD (50MG MANE, 75MG NOCTE) (50MG MANE, 75MG NOCTE INCREASED TO 75MG BD)
     Route: 048
     Dates: start: 20200115, end: 20220127
  2. CARBOPLATIN [Concomitant]
     Active Substance: CARBOPLATIN
     Indication: Product used for unknown indication
     Dosage: UNK
     Route: 065
     Dates: start: 202111
  3. PEMETREXED [Concomitant]
     Active Substance: PEMETREXED
     Indication: Product used for unknown indication
     Dosage: UNK
     Route: 065
     Dates: start: 202111
  4. PEMBROLIZUMAB [Concomitant]
     Active Substance: PEMBROLIZUMAB
     Indication: Product used for unknown indication
     Dosage: UNK
     Route: 065
     Dates: start: 202111

REACTIONS (2)
  - Transient ischaemic attack [Not Recovered/Not Resolved]
  - Metastases to central nervous system [Not Recovered/Not Resolved]

NARRATIVE: CASE EVENT DATE: 20220101
